FAERS Safety Report 16149340 (Version 1)
Quarter: 2019Q2

REPORT INFORMATION
  Report Type: Spontaneous
  Country: JP (occurrence: JP)
  Receive Date: 20190402
  Receipt Date: 20190402
  Transmission Date: 20190711
  Serious: Yes (Disabling, Other)
  Sender: FDA-Public Use
  Company Number: JP-PFIZER INC-2018530509

PATIENT
  Age: 81 Year
  Sex: Female

DRUGS (5)
  1. LANSOPRAZOLE. [Suspect]
     Active Substance: LANSOPRAZOLE
     Indication: GASTROOESOPHAGEAL REFLUX DISEASE
     Dosage: 15 MG, DAILY
     Route: 048
     Dates: start: 20180306
  2. EDIROL [Concomitant]
     Active Substance: ELDECALCITOL
  3. RHEUMATREX [Suspect]
     Active Substance: METHOTREXATE SODIUM
     Indication: RHEUMATOID ARTHRITIS
     Dosage: 8 MG, WEEKLY
     Route: 048
     Dates: start: 20180223
  4. VIVIANT [Suspect]
     Active Substance: BAZEDOXIFENE
     Indication: OSTEOPOROSIS POSTMENOPAUSAL
     Dosage: 20 MG, DAILY
     Route: 048
     Dates: start: 20181002, end: 201812
  5. RANIBIZUMAB. [Concomitant]
     Active Substance: RANIBIZUMAB
     Dosage: UNK
     Dates: start: 20181202

REACTIONS (1)
  - Retinal vein occlusion [Not Recovered/Not Resolved]

NARRATIVE: CASE EVENT DATE: 20181211
